FAERS Safety Report 7009338 (Version 5)
Quarter: 2013Q2

REPORT INFORMATION
  Report Type: Spontaneous
  Country: US (occurrence: None)
  Receive Date: 20090522
  Receipt Date: 20130507
  Transmission Date: 20140414
  Serious: Yes (Hospitalization)
  Sender: FDA-Public Use
  Company Number: CERZ-1000639

PATIENT
  Age: 60 Year
  Sex: Male

DRUGS (3)
  1. CEREZYME [Suspect]
     Indication: GAUCHER^S DISEASE
     Route: 042
     Dates: start: 19980714
  2. PULMONARY MEDICATION [Concomitant]
  3. ALLERGY MEDICATION [Concomitant]

REACTIONS (9)
  - PROSTATE CANCER [None]
  - INFUSION RELATED REACTION [None]
  - PRURITUS [None]
  - NAUSEA [None]
  - DIARRHOEA [None]
  - EYELID OEDEMA [None]
  - URTICARIA [None]
  - BLOOD IMMUNOGLOBULIN G [None]
  - Prostate cancer recurrent [None]
